FAERS Safety Report 9527538 (Version 1)
Quarter: 2013Q1

REPORT INFORMATION
  Report Type: Spontaneous
  Country: US (occurrence: None)
  Receive Date: 20130314
  Receipt Date: 20130314
  Transmission Date: 20140127
  Serious: Yes (Other)
  Sender: FDA-Public Use
  Company Number: 1211USA002923

PATIENT
  Sex: Female

DRUGS (3)
  1. PEGINTERFERON [Suspect]
     Indication: HEPATITIS C
     Route: 058
     Dates: start: 20121019
  2. RIBAVIRIN [Suspect]
     Indication: HEPATITIS C
     Route: 048
     Dates: start: 20121019
  3. VICTRELIS (BOCEPREVIR)CAPSULE [Suspect]
     Indication: HEPATITIS C
     Route: 048
     Dates: start: 20121116

REACTIONS (12)
  - Fatigue [None]
  - Oropharyngeal pain [None]
  - White blood cell count decreased [None]
  - Monocyte count increased [None]
  - Neutrophil count decreased [None]
  - Dysgeusia [None]
  - Chills [None]
  - Pain [None]
  - Fatigue [None]
  - Dyspnoea [None]
  - Dyspnoea [None]
  - Conjunctivitis infective [None]
